FAERS Safety Report 14618523 (Version 5)
Quarter: 2018Q2

REPORT INFORMATION
  Report Type: Report from Study
  Country: NZ (occurrence: NZ)
  Receive Date: 20180309
  Receipt Date: 20180626
  Transmission Date: 20180711
  Serious: Yes (Hospitalization, Other)
  Sender: FDA-Public Use
  Company Number: PHHY2017NZ175569

PATIENT
  Age: 26 Year
  Sex: Female

DRUGS (8)
  1. VENLAFAXINE [Suspect]
     Active Substance: VENLAFAXINE HYDROCHLORIDE
     Indication: PRODUCT USED FOR UNKNOWN INDICATION
     Dosage: 75 MG, UNK
     Route: 065
     Dates: start: 2017
  2. CLOZARIL [Suspect]
     Active Substance: CLOZAPINE
     Dosage: 125 MG, UNK
     Route: 048
  3. QUETIAPINE. [Suspect]
     Active Substance: QUETIAPINE
     Dosage: 50 MG, UNK
     Route: 065
     Dates: start: 2017
  4. CLOZARIL [Suspect]
     Active Substance: CLOZAPINE
     Indication: SCHIZOPHRENIA
     Dosage: UNK
     Route: 048
     Dates: start: 20171026, end: 20171122
  5. CLOZARIL [Suspect]
     Active Substance: CLOZAPINE
     Dosage: UNK
     Route: 048
     Dates: start: 2017, end: 2017
  6. CLOZARIL [Suspect]
     Active Substance: CLOZAPINE
     Dosage: UNK
     Route: 048
     Dates: start: 20180108
  7. QUETIAPINE. [Suspect]
     Active Substance: QUETIAPINE
     Indication: PRODUCT USED FOR UNKNOWN INDICATION
     Dosage: 25 MG, UNK
     Route: 065
     Dates: start: 2017
  8. CLOZARIL [Suspect]
     Active Substance: CLOZAPINE
     Dosage: UNK
     Route: 048
     Dates: start: 20171205, end: 20171211

REACTIONS (22)
  - Neutropenia [Recovering/Resolving]
  - Hypotension [Recovered/Resolved]
  - Visual impairment [Unknown]
  - Feeling abnormal [Recovered/Resolved]
  - Blood pressure abnormal [Recovered/Resolved]
  - Malaise [Recovered/Resolved]
  - Nausea [Unknown]
  - Vomiting [Unknown]
  - Tremor [Unknown]
  - Memory impairment [Unknown]
  - Schizophrenia [Unknown]
  - Metabolic disorder [Unknown]
  - Heart rate increased [Unknown]
  - Hypersensitivity [Unknown]
  - Neutrophil count abnormal [Unknown]
  - White blood cell count decreased [Recovering/Resolving]
  - Cold sweat [Recovered/Resolved]
  - Hyperhidrosis [Recovered/Resolved]
  - Hyperreflexia [Unknown]
  - Viral infection [Unknown]
  - Thrombocytopenia [Not Recovered/Not Resolved]
  - Mental impairment [Unknown]

NARRATIVE: CASE EVENT DATE: 2017
